FAERS Safety Report 8111330-4 (Version None)
Quarter: 2012Q1

REPORT INFORMATION
  Report Type: 
  Country: None (occurrence: None)
  Receive Date: 20120203
  Receipt Date: 20110907
  Transmission Date: 20120608
  Serious: Yes (Hospitalization, Other)
  Sender: FDA-Public Use
  Company Number: US-GLAXOSMITHKLINE-A0943717A

PATIENT
  Age: 17 Year
  Sex: Male

DRUGS (8)
  1. LAMICTAL [Suspect]
     Indication: EPILEPSY
     Dosage: 225MG TWICE PER DAY
     Route: 065
  2. KEPPRA [Concomitant]
  3. POTASSIUM [Concomitant]
  4. ROCALTROL [Concomitant]
  5. VASOTEC [Concomitant]
  6. POLYCITRA [Concomitant]
  7. CALCIUM CARBONATE [Concomitant]
  8. VITAMIN [Concomitant]

REACTIONS (2)
  - THROMBOCYTOPENIA [None]
  - ANAEMIA [None]
